FAERS Safety Report 5138869-8 (Version None)
Quarter: 2006Q4

REPORT INFORMATION
  Report Type: 
  Country: None (occurrence: None)
  Receive Date: 20061030
  Receipt Date: 20060508
  Transmission Date: 20070319
  Serious: No
  Sender: FDA-Public Use
  Company Number: US-GLAXOSMITHKLINE-A0604672A

PATIENT
  Sex: Male

DRUGS (5)
  1. ADVAIR HFA [Suspect]
     Indication: ASTHMA
     Route: 055
  2. ATIVAN [Concomitant]
  3. PROZAC [Concomitant]
  4. FLONASE [Concomitant]
  5. DIAVAN [Concomitant]

REACTIONS (1)
  - ACCIDENTAL OVERDOSE [None]
